FAERS Safety Report 6408834-9 (Version None)
Quarter: 2009Q4

REPORT INFORMATION
  Report Type: 
  Country: None (occurrence: None)
  Receive Date: 20091019
  Receipt Date: 20091002
  Transmission Date: 20100525
  Serious: Yes (Hospitalization)
  Sender: FDA-Public Use
  Company Number: 1000005792

PATIENT
  Age: 81 Year
  Sex: Male
  Weight: 78 kg

DRUGS (8)
  1. MEMANTINE HCL [Suspect]
     Indication: DEMENTIA ALZHEIMER'S TYPE
     Dosage: 20 MG (20 MG, 1 IN 1 D), ORAL; 5 MG (5 MG, 1 IN 1 D), ORAL
     Route: 048
     Dates: start: 20090318, end: 20090402
  2. MEMANTINE HCL [Suspect]
     Indication: DEMENTIA ALZHEIMER'S TYPE
     Dosage: 20 MG (20 MG, 1 IN 1 D), ORAL; 5 MG (5 MG, 1 IN 1 D), ORAL
     Route: 048
     Dates: end: 20090402
  3. DELIX (RAMIPRIL/HYDROCHLOROTHIAZIDE) [Concomitant]
  4. ACETYLSALICYLIC ACID [Concomitant]
  5. RIVASTIGMINE TARTRATE [Concomitant]
  6. NITRENDIPINE [Concomitant]
  7. METFORMIN HCL [Concomitant]
  8. NITRENDIPIN [Concomitant]

REACTIONS (3)
  - FALL [None]
  - INCORRECT DOSE ADMINISTERED [None]
  - PRESYNCOPE [None]
